FAERS Safety Report 8263207-1 (Version None)
Quarter: 2012Q2

REPORT INFORMATION
  Report Type: 
  Country: None (occurrence: None)
  Receive Date: 20120405
  Receipt Date: 20120330
  Transmission Date: 20120825
  Serious: No
  Sender: FDA-Public Use
  Company Number: US-PFIZER INC-2012082499

PATIENT
  Sex: Female

DRUGS (6)
  1. LYRICA [Suspect]
     Dosage: 50 MG, 3X/DAY
  2. FLEXERIL [Concomitant]
  3. LEXAPRO [Concomitant]
  4. ACETAMINOPHEN AND HYDROCODONE BITARTRATE [Concomitant]
  5. NEURONTIN [Suspect]
     Dosage: 300 MG, 3X/DAY
  6. DIAZEPAM [Concomitant]

REACTIONS (1)
  - MALAISE [None]
